FAERS Safety Report 17822967 (Version 1)
Quarter: 2020Q2

REPORT INFORMATION
  Report Type: Spontaneous
  Country: US (occurrence: US)
  Receive Date: 20200522
  Receipt Date: 20200522
  Transmission Date: 20200714
  Serious: Yes (Hospitalization)
  Sender: FDA-Public Use
  Company Number: None

PATIENT
  Age: 84 Year
  Sex: Female
  Weight: 58.01 kg

DRUGS (10)
  1. CAPECITABINE. [Suspect]
     Active Substance: CAPECITABINE
     Indication: BREAST CANCER
     Route: 048
     Dates: start: 20200408
  2. FUROSEMIDE. [Concomitant]
     Active Substance: FUROSEMIDE
  3. SIMVASTATIN. [Concomitant]
     Active Substance: SIMVASTATIN
  4. MULTIVITAMINS [Concomitant]
     Active Substance: VITAMINS
  5. TIMOLOL. [Concomitant]
     Active Substance: TIMOLOL
  6. CALCIUM [Concomitant]
     Active Substance: CALCIUM
  7. EXEMESTANE. [Concomitant]
     Active Substance: EXEMESTANE
  8. VITAMIN D [Concomitant]
     Active Substance: VITAMIN D NOS
  9. LISINOPRIL. [Concomitant]
     Active Substance: LISINOPRIL
  10. ALLOPURINOL. [Concomitant]
     Active Substance: ALLOPURINOL

REACTIONS (2)
  - Diarrhoea [None]
  - Abdominal pain upper [None]
